FAERS Safety Report 8788087 (Version 1)
Quarter: 2012Q4

REPORT INFORMATION
  Report Type: 
  Country: US (occurrence: US)
  Receive Date: 20120914
  Receipt Date: 20120914
  Transmission Date: 20130627
  Serious: Yes (Other)
  Sender: FDA-Public Use
  Company Number: PHEH2012US017553

PATIENT
  Sex: Male

DRUGS (1)
  1. TERBINAFINE HYDOCHLORIDE [Suspect]
     Indication: FUNGAL INFECTION
     Dosage: 250 mg, QD
     Route: 048
     Dates: start: 20120526

REACTIONS (3)
  - Panic attack [Unknown]
  - Depression [Not Recovered/Not Resolved]
  - Decreased appetite [Unknown]
